FAERS Safety Report 6504111-6 (Version None)
Quarter: 2009Q4

REPORT INFORMATION
  Report Type: 
  Country: None (occurrence: None)
  Receive Date: 20091215
  Receipt Date: 20091130
  Transmission Date: 20100525
  Serious: Yes (Other)
  Sender: FDA-Public Use
  Company Number: 1000010261

PATIENT
  Age: 85 Year
  Sex: Female
  Weight: 66 kg

DRUGS (7)
  1. ESCITALOPRAM [Suspect]
     Indication: DEPRESSION
     Dosage: 5 MG (5 MG,1 IN 1 D), ORAL
     Route: 048
     Dates: start: 20090904, end: 20090926
  2. FOSAVANCE [Concomitant]
  3. TEMERIT [Concomitant]
  4. ZANIDIP [Concomitant]
  5. BROMAZEPAM [Concomitant]
  6. MOXONIDINE [Concomitant]
  7. CACIT [Concomitant]

REACTIONS (1)
  - EPILEPSY [None]
